FAERS Safety Report 26170494 (Version 1)
Quarter: 2025Q4

REPORT INFORMATION
  Report Type: Spontaneous
  Country: US (occurrence: None)
  Receive Date: 20251217
  Receipt Date: 20251217
  Transmission Date: 20260117
  Serious: Yes (Death)
  Sender: FDA-CTU
  Company Number: None

PATIENT
  Sex: Male
  Weight: 58 kg

DRUGS (1)
  1. APIXABAN [Suspect]
     Active Substance: APIXABAN
     Indication: Deep vein thrombosis
     Dosage: 2.5 MG BID PO
     Route: 048
     Dates: start: 20230519, end: 20250730

REACTIONS (7)
  - Cerebral haemorrhage [None]
  - Animal attack [None]
  - Open globe injury [None]
  - Rib fracture [None]
  - Fracture blisters [None]
  - Splenic rupture [None]
  - Refusal of treatment by relative [None]

NARRATIVE: CASE EVENT DATE: 20250730
